FAERS Safety Report 9333272 (Version 2)
Quarter: 2013Q3

REPORT INFORMATION
  Report Type: Spontaneous
  Country: HR (occurrence: HR)
  Receive Date: 20130606
  Receipt Date: 20130705
  Transmission Date: 20140515
  Serious: Yes (Other)
  Sender: FDA-Public Use
  Company Number: HR-BAYER-2013-069311

PATIENT
  Age: 40 Year
  Sex: Female

DRUGS (2)
  1. MIRENA INTRAUTERINE SYSTEM [Suspect]
     Indication: MENORRHAGIA
     Dosage: 20 MCG/24HR, CONT
     Route: 015
     Dates: start: 201012
  2. PROZAC [Concomitant]
     Indication: DEPRESSION

REACTIONS (1)
  - Haemangioma of liver [Not Recovered/Not Resolved]
